FAERS Safety Report 20582213 (Version 1)
Quarter: 2022Q1

REPORT INFORMATION
  Report Type: Spontaneous
  Country: US (occurrence: None)
  Receive Date: 20220310
  Receipt Date: 20220310
  Transmission Date: 20220423
  Serious: Yes (Disabling)
  Sender: FDA-Public Use
  Company Number: None

PATIENT
  Age: 57 Year
  Sex: Female
  Weight: 51.75 kg

DRUGS (2)
  1. GABAPENTIN [Suspect]
     Active Substance: GABAPENTIN
     Indication: Anxiety
     Dosage: OTHER QUANTITY : 1 CAPSULE(S);?FREQUENCY : EVERY 4 HOURS;?
     Route: 048
     Dates: start: 20170301, end: 20220201
  2. GABAPENTIN [Suspect]
     Active Substance: GABAPENTIN
     Indication: Pain

REACTIONS (3)
  - Drug dependence [None]
  - Quality of life decreased [None]
  - Insomnia [None]

NARRATIVE: CASE EVENT DATE: 20220201
